FAERS Safety Report 22071493 (Version 8)
Quarter: 2023Q4

REPORT INFORMATION
  Report Type: Report from Study
  Country: KR (occurrence: KR)
  Receive Date: 20230307
  Receipt Date: 20231102
  Transmission Date: 20240110
  Serious: Yes (Hospitalization, Other)
  Sender: FDA-Public Use
  Company Number: KR-JNJFOC-20230263134

PATIENT
  Age: 38 Year
  Sex: Male
  Weight: 60.5 kg

DRUGS (24)
  1. AMIVANTAMAB [Suspect]
     Active Substance: AMIVANTAMAB
     Indication: Non-small cell lung cancer
     Dosage: START DATE ALSO REPORTED AS  21-FEB-2023, DOSE ALSO REPORTED AS 10 ML, 25R VIAL
     Route: 058
     Dates: start: 20230222, end: 20230222
  2. COUGH SYRUP [ANTIMONY POTASSIUM TARTRATE;PAPAVER SOMNIFERUM TINCTURE;T [Concomitant]
     Indication: Cough
     Route: 048
     Dates: start: 20230103, end: 20230403
  3. ULTRACET [Concomitant]
     Active Substance: ACETAMINOPHEN\TRAMADOL HYDROCHLORIDE
     Indication: Scrotal pain
     Route: 048
     Dates: start: 20230222, end: 20230301
  4. URSODIOL [Concomitant]
     Active Substance: URSODIOL
     Indication: Prophylaxis
     Route: 048
     Dates: start: 20230222, end: 20230227
  5. URSODIOL [Concomitant]
     Active Substance: URSODIOL
     Indication: Aspartate aminotransferase increased
     Route: 048
     Dates: start: 20230307, end: 20230314
  6. XARELTO [Concomitant]
     Active Substance: RIVAROXABAN
     Indication: Prophylaxis
     Route: 048
     Dates: start: 20230222, end: 20230612
  7. PRALIDOXIME [Concomitant]
     Active Substance: PRALIDOXIME
     Indication: Pruritus
     Route: 048
     Dates: start: 20230228, end: 20230403
  8. LACTICARE HC [HYDROCORTISONE] [Concomitant]
     Indication: Rash
     Dosage: 118 G
     Route: 061
     Dates: start: 20230228, end: 20230612
  9. ZEROID INTENSIVE [Concomitant]
     Indication: Dry skin
     Dosage: 200 ML
     Route: 061
     Dates: start: 20230228
  10. SERTACONAZOLE NITRATE [Concomitant]
     Active Substance: SERTACONAZOLE NITRATE
     Indication: Rash
     Dosage: 1
     Route: 061
     Dates: start: 20230307
  11. DUAC [Concomitant]
     Active Substance: BENZOYL PEROXIDE\CLINDAMYCIN PHOSPHATE
     Indication: Dermatitis acneiform
     Dosage: 1
     Route: 061
     Dates: start: 20230307
  12. EBASTINE [Concomitant]
     Active Substance: EBASTINE
     Indication: Dermatitis acneiform
     Route: 048
     Dates: start: 20230307, end: 20230315
  13. EBASTINE [Concomitant]
     Active Substance: EBASTINE
     Indication: Pruritus
  14. METHYLPREDNISOLONE [Concomitant]
     Active Substance: METHYLPREDNISOLONE
     Indication: Prophylaxis
     Route: 048
     Dates: start: 20230307, end: 20230315
  15. ZADITEN [Concomitant]
     Active Substance: KETOTIFEN FUMARATE
     Indication: Dermatitis acneiform
     Route: 048
     Dates: start: 20230307, end: 20230315
  16. ZADITEN [Concomitant]
     Active Substance: KETOTIFEN FUMARATE
     Indication: Pruritus
  17. MINOCYCLINE HYDROCHLORIDE [Concomitant]
     Active Substance: MINOCYCLINE HYDROCHLORIDE
     Indication: Rash
     Route: 048
     Dates: start: 20230308, end: 20230626
  18. MINOCYCLINE HYDROCHLORIDE [Concomitant]
     Active Substance: MINOCYCLINE HYDROCHLORIDE
     Indication: Dermatitis acneiform
  19. ZOLPIDEM TARTRATE [Concomitant]
     Active Substance: ZOLPIDEM TARTRATE
     Indication: Prophylaxis
     Route: 048
     Dates: start: 20230308, end: 20230501
  20. PARAFFIN [Concomitant]
     Active Substance: PARAFFIN
     Indication: Dry skin
     Dosage: 1 (NO UNIT  PROVIDED)
     Route: 061
     Dates: start: 20230309
  21. DULACKHAN EASY [Concomitant]
     Indication: Constipation
     Route: 048
     Dates: start: 20230225, end: 20230501
  22. DULCOLAX (BISACODYL) [Concomitant]
     Active Substance: BISACODYL
     Indication: Constipation
     Route: 048
     Dates: start: 20230225, end: 20230501
  23. ACETPHEN PREMIX [Concomitant]
     Indication: Pyrexia
     Route: 042
     Dates: start: 20230305, end: 20230305
  24. MYPOL [CODEINE PHOSPHATE;IBUPROFEN;PARACETAMOL] [Concomitant]
     Indication: Scrotal pain
     Route: 048
     Dates: start: 20230302, end: 20230403

REACTIONS (2)
  - Liver function test abnormal [Recovered/Resolved]
  - Pneumothorax [Recovered/Resolved]

NARRATIVE: CASE EVENT DATE: 20230228
